FAERS Safety Report 7380830-7 (Version None)
Quarter: 2011Q1

REPORT INFORMATION
  Report Type: 
  Country: None (occurrence: None)
  Receive Date: 20110329
  Receipt Date: 20110321
  Transmission Date: 20110831
  Serious: Yes (Hospitalization)
  Sender: FDA-Public Use
  Company Number: A0920356A

PATIENT
  Age: 33 Year
  Sex: Female

DRUGS (8)
  1. TRAZODONE [Suspect]
  2. UNSPECIFIED MEDICATION [Concomitant]
  3. TEGRETOL [Suspect]
  4. PROPRANOLOL [Concomitant]
  5. REBIF [Suspect]
     Indication: MULTIPLE SCLEROSIS RELAPSE
     Dosage: 22MCG UNKNOWN
     Route: 058
     Dates: start: 20091009, end: 20090101
  6. PROPYLTHIOURACIL [Suspect]
     Indication: HYPERTHYROIDISM
  7. DICLOFENAC [Suspect]
  8. VALTREX [Suspect]
     Indication: ORAL HERPES

REACTIONS (7)
  - INFLUENZA LIKE ILLNESS [None]
  - GAIT DISTURBANCE [None]
  - FEELING OF BODY TEMPERATURE CHANGE [None]
  - LEUKOPENIA [None]
  - PAIN [None]
  - MULTIPLE SCLEROSIS RELAPSE [None]
  - FALL [None]
